FAERS Safety Report 7907118-7 (Version None)
Quarter: 2011Q4

REPORT INFORMATION
  Report Type: 
  Country: None (occurrence: None)
  Receive Date: 20111110
  Receipt Date: 20110214
  Transmission Date: 20120403
  Serious: No
  Sender: FDA-Public Use
  Company Number: US-ASTRAZENECA-2011SE09049

PATIENT
  Age: 65 Year
  Sex: Female

DRUGS (2)
  1. ZESTRIL [Suspect]
     Indication: BLOOD PRESSURE
     Route: 048
     Dates: start: 20110207
  2. EXCEDRIN (MIGRAINE) [Suspect]

REACTIONS (2)
  - MUSCLE SPASMS [None]
  - CONDITION AGGRAVATED [None]
